FAERS Safety Report 4302292-6 (Version None)
Quarter: 2004Q1

REPORT INFORMATION
  Report Type: 
  Country: None (occurrence: None)
  Receive Date: 20040223
  Receipt Date: 20031106
  Transmission Date: 20041129
  Serious: Yes (Other)
  Sender: FDA-Public Use
  Company Number: WAES 0311USA00524

PATIENT
  Age: 59 Year
  Sex: Female
  Weight: 56 kg

DRUGS (6)
  1. FOSAMAX [Suspect]
     Indication: OSTEOPOROSIS
     Route: 048
     Dates: end: 19980801
  2. FOSAMAX [Suspect]
     Route: 048
     Dates: start: 19980801
  3. CALCIUM (UNSPECIFIED) AND VITAMIN D (UNSPECIFIED) [Concomitant]
  4. PREMARIN [Concomitant]
     Dates: end: 20011001
  5. PREMPHASE 14/14 [Concomitant]
     Dates: end: 20011001
  6. VITAMINS (UNSPECIFIED) [Concomitant]

REACTIONS (13)
  - ARTHRALGIA [None]
  - BREAST CANCER [None]
  - CARCINOEMBRYONIC ANTIGEN INCREASED [None]
  - COCCYDYNIA [None]
  - CONTUSION [None]
  - FALL [None]
  - HIP FRACTURE [None]
  - PAIN IN EXTREMITY [None]
  - RIB FRACTURE [None]
  - SACRAL PAIN [None]
  - SPINAL COMPRESSION FRACTURE [None]
  - SPINAL FRACTURE [None]
  - STRESS FRACTURE [None]
